FAERS Safety Report 7343063-6 (Version None)
Quarter: 2011Q1

REPORT INFORMATION
  Report Type: 
  Country: None (occurrence: None)
  Receive Date: 20110302
  Receipt Date: 20110223
  Transmission Date: 20110831
  Serious: No
  Sender: FDA-Public Use
  Company Number: 2011MA001701

PATIENT
  Age: 39 Year
  Sex: Female

DRUGS (3)
  1. MIDAZOLAM HCL [Suspect]
     Dosage: 2 MG
  2. SERTRALINE HYDROCHLORIDE [Suspect]
     Dosage: 100 MG; QD
  3. FENTANYL [Suspect]
     Dosage: 50 MCG

REACTIONS (6)
  - RHABDOMYOLYSIS [None]
  - NO THERAPEUTIC RESPONSE [None]
  - DRUG INTERACTION [None]
  - MALLORY-WEISS SYNDROME [None]
  - VARICES OESOPHAGEAL [None]
  - SEROTONIN SYNDROME [None]
